FAERS Safety Report 10566074 (Version 3)
Quarter: 2015Q2

REPORT INFORMATION
  Report Type: Spontaneous
  Country: US (occurrence: US)
  Receive Date: 20141105
  Receipt Date: 20150416
  Transmission Date: 20150821
  Serious: Yes (Death)
  Sender: FDA-Public Use
  Company Number: US-PFIZER INC-2014305065

PATIENT

DRUGS (1)
  1. LYRICA [Suspect]
     Active Substance: PREGABALIN
     Dosage: 300 MG IN MORNING AND 150 MG IN EVENING

REACTIONS (5)
  - Lung cancer metastatic [Fatal]
  - Metastases to liver [Fatal]
  - Metastases to central nervous system [Fatal]
  - Metastases to spine [Fatal]
  - Metastases to lymph nodes [Fatal]
